FAERS Safety Report 19996930 (Version 1)
Quarter: 2021Q4

REPORT INFORMATION
  Report Type: Spontaneous
  Country: US (occurrence: US)
  Receive Date: 20211025
  Receipt Date: 20211025
  Transmission Date: 20220303
  Serious: Yes (Other)
  Sender: FDA-Public Use
  Company Number: US-REGENERON PHARMACEUTICALS, INC.-2021-95543

PATIENT

DRUGS (2)
  1. LIBTAYO [Suspect]
     Active Substance: CEMIPLIMAB-RWLC
     Indication: Basal cell carcinoma
     Dosage: UNK
     Dates: start: 202106
  2. LIBTAYO [Suspect]
     Active Substance: CEMIPLIMAB-RWLC
     Dosage: UNK
     Dates: start: 20211019, end: 20211019

REACTIONS (7)
  - Loss of consciousness [Unknown]
  - Heat stroke [Unknown]
  - Hypersensitivity [Unknown]
  - Swelling face [Unknown]
  - Dizziness [Unknown]
  - Feeling hot [Unknown]
  - Dyspnoea [Unknown]
